FAERS Safety Report 7294302-1 (Version None)
Quarter: 2011Q1

REPORT INFORMATION
  Report Type: 
  Country: None (occurrence: None)
  Receive Date: 20110215
  Receipt Date: 20110207
  Transmission Date: 20110831
  Serious: Yes (Other)
  Sender: FDA-Public Use
  Company Number: JP-MERCK-1101USA03437

PATIENT
  Age: 62 Year
  Sex: Female
  Weight: 77 kg

DRUGS (8)
  1. BLOPRESS [Concomitant]
     Indication: HYPERTENSION
     Route: 048
     Dates: start: 20090601, end: 20100726
  2. ARTIONE [Concomitant]
     Indication: HYPERTENSION
     Route: 048
     Dates: start: 20081001
  3. JANUVIA [Suspect]
     Indication: DIABETES MELLITUS
     Route: 048
     Dates: start: 20091215, end: 20101101
  4. AMARYL [Concomitant]
     Indication: DIABETES MELLITUS
     Route: 048
     Dates: end: 20100319
  5. ACTOS [Concomitant]
     Indication: DIABETES MELLITUS
     Route: 048
     Dates: end: 20100726
  6. SELARA [Concomitant]
     Indication: HYPERTENSION
     Route: 048
  7. NORVASC [Concomitant]
     Indication: HYPERTENSION
     Route: 048
     Dates: end: 20100726
  8. MELBIN [Suspect]
     Indication: DIABETES MELLITUS
     Route: 048
     Dates: end: 20100726

REACTIONS (1)
  - PLATELET COUNT DECREASED [None]
